FAERS Safety Report 4686068-6 (Version None)
Quarter: 2005Q2

REPORT INFORMATION
  Report Type: 
  Country: None (occurrence: None)
  Receive Date: 20050609
  Receipt Date: 20050530
  Transmission Date: 20051028
  Serious: Yes (Hospitalization)
  Sender: FDA-Public Use
  Company Number: SEWYE709301JUN05

PATIENT
  Sex: Male

DRUGS (2)
  1. ENBREL [Suspect]
     Indication: RHEUMATOID ARTHRITIS
     Dosage: NOT SPECIFIED
     Dates: start: 19990101, end: 20050329
  2. METHOTREXATE [Concomitant]

REACTIONS (3)
  - ARTHRITIS [None]
  - PYREXIA [None]
  - RASH [None]
